FAERS Safety Report 10200699 (Version 3)
Quarter: 2014Q3

REPORT INFORMATION
  Report Type: Report from Study
  Country: GB (occurrence: GB)
  Receive Date: 20140528
  Receipt Date: 20140714
  Transmission Date: 20150326
  Serious: Yes (Death, Hospitalization)
  Sender: FDA-Public Use
  Company Number: GB-ROCHE-1385724

PATIENT
  Age: 81 Year
  Sex: Male

DRUGS (18)
  1. RANIBIZUMAB [Suspect]
     Active Substance: RANIBIZUMAB
     Dosage: LAST DOSE PROIR TO SAE 21/FEB/2014
     Route: 050
     Dates: start: 20140309
  2. ALLOPURINOL. [Concomitant]
     Active Substance: ALLOPURINOL
     Route: 065
     Dates: start: 20110815
  3. BISOPROLOL [Concomitant]
     Active Substance: BISOPROLOL
     Route: 065
     Dates: start: 20140402
  4. RANIBIZUMAB [Suspect]
     Active Substance: RANIBIZUMAB
     Indication: PRODUCT USED FOR UNKNOWN INDICATION
     Dosage: LAST DOSE PRIOR TO SAE 21 FEB 2014.
     Route: 050
     Dates: start: 2010
  5. FELODIPINE. [Concomitant]
     Active Substance: FELODIPINE
     Route: 065
     Dates: start: 20140402
  6. COLCHICINE. [Concomitant]
     Active Substance: COLCHICINE
     Route: 065
     Dates: start: 20140402
  7. BISOPROLOL [Concomitant]
     Active Substance: BISOPROLOL
     Route: 065
     Dates: start: 20080225
  8. COLCHICINE. [Concomitant]
     Active Substance: COLCHICINE
     Route: 065
     Dates: start: 20140106
  9. BENDROFLUMETHIAZIDE [Concomitant]
     Active Substance: BENDROFLUMETHIAZIDE
     Route: 065
     Dates: start: 20140402
  10. FELODIPINE. [Concomitant]
     Active Substance: FELODIPINE
     Route: 065
     Dates: start: 20061204
  11. ALLOPURINOL. [Concomitant]
     Active Substance: ALLOPURINOL
     Route: 065
     Dates: start: 20140402
  12. PARACETAMOL [Concomitant]
     Active Substance: ACETAMINOPHEN
     Route: 065
     Dates: start: 2008
  13. CANDESARTAN [Concomitant]
     Active Substance: CANDESARTAN
     Route: 065
     Dates: start: 20020625
  14. PARACETAMOL [Concomitant]
     Active Substance: ACETAMINOPHEN
     Route: 065
     Dates: start: 20140402
  15. CODEINE PHOSPHATE [Concomitant]
     Active Substance: CODEINE PHOSPHATE
     Route: 065
     Dates: start: 2008
  16. LACTULOSE. [Concomitant]
     Active Substance: LACTULOSE
     Route: 065
     Dates: start: 2008
  17. CANDESARTAN [Concomitant]
     Active Substance: CANDESARTAN
     Route: 065
     Dates: start: 20140402
  18. BENDROFLUMETHIAZIDE [Concomitant]
     Active Substance: BENDROFLUMETHIAZIDE
     Route: 065
     Dates: start: 20080319

REACTIONS (2)
  - Cerebral haemorrhage [Fatal]
  - Cerebrovascular accident [Fatal]

NARRATIVE: CASE EVENT DATE: 20140402
